FAERS Safety Report 6719663-0 (Version None)
Quarter: 2010Q2

REPORT INFORMATION
  Report Type: 
  Country: None (occurrence: None)
  Receive Date: 20100511
  Receipt Date: 20100429
  Transmission Date: 20101027
  Serious: Yes (Hospitalization, Other)
  Sender: FDA-Public Use
  Company Number: IE-MEDIMMUNE-MEDI-0010122

PATIENT
  Sex: Female

DRUGS (3)
  1. SYNAGIS [Suspect]
     Route: 030
     Dates: start: 20091019, end: 20100219
  2. IPRATROPIUM BROMIDE [Concomitant]
  3. BECLOMETHASONE DIPROPIONATE [Concomitant]

REACTIONS (1)
  - BRONCHIOLITIS [None]
